FAERS Safety Report 9613927 (Version 4)
Quarter: 2015Q2

REPORT INFORMATION
  Report Type: Report from Study
  Country: GB (occurrence: GB)
  Receive Date: 20131010
  Receipt Date: 20150501
  Transmission Date: 20150821
  Serious: Yes (Other)
  Sender: FDA-Public Use
  Company Number: GB-ROCHE-1216058

PATIENT
  Age: 43 Year
  Sex: Male
  Weight: 110.6 kg

DRUGS (9)
  1. IBUPROFEN. [Concomitant]
     Active Substance: IBUPROFEN
     Dosage: 200-400MG
     Route: 048
  2. ARCOXIA [Concomitant]
     Active Substance: ETORICOXIB
     Route: 048
  3. SULPHASALAZINE [Concomitant]
     Active Substance: SULFASALAZINE
     Route: 048
  4. TOCILIZUMAB [Suspect]
     Active Substance: TOCILIZUMAB
     Route: 042
     Dates: start: 20130411, end: 20131002
  5. METHOTREXATE [Suspect]
     Active Substance: METHOTREXATE
     Dosage: DATE OF LAST DOSE PRIOR TO SAE: 14/MAR/2013 PRIOR TO BLLEDING PER RECTUM?DATE OF LAST DOSE PRIOR TO
     Route: 042
     Dates: start: 20130314
  6. TOCILIZUMAB [Suspect]
     Active Substance: TOCILIZUMAB
     Indication: RHEUMATOID ARTHRITIS
     Dosage: DATE OF LAST DOSE PRIOR TO SAE: 04/SEP/2013
     Route: 042
     Dates: start: 20130207
  7. TOCILIZUMAB [Suspect]
     Active Substance: TOCILIZUMAB
     Route: 042
     Dates: start: 20130314
  8. METHOTREXATE [Suspect]
     Active Substance: METHOTREXATE
     Indication: RHEUMATOID ARTHRITIS
     Route: 048
     Dates: start: 20130207, end: 20130307
  9. HYDROXYCHLOROQUINE [Concomitant]
     Active Substance: HYDROXYCHLOROQUINE
     Route: 048

REACTIONS (2)
  - Rectal haemorrhage [Not Recovered/Not Resolved]
  - Rectal haemorrhage [Recovered/Resolved]

NARRATIVE: CASE EVENT DATE: 20130327
